FAERS Safety Report 8735359 (Version 2)
Quarter: 2012Q4

REPORT INFORMATION
  Report Type: Report from Study
  Country: US (occurrence: US)
  Receive Date: 20120822
  Receipt Date: 20120921
  Transmission Date: 20130627
  Serious: Yes (Death, Other)
  Sender: FDA-Public Use
  Company Number: US-BIOGENIDEC-2012BI032134

PATIENT
  Age: 41 Year
  Sex: Male

DRUGS (14)
  1. TYSABRI [Suspect]
     Indication: MULTIPLE SCLEROSIS
     Route: 042
     Dates: start: 20081203, end: 20120725
  2. DIAZEPAM [Concomitant]
     Indication: MUSCLE SPASMS
     Route: 048
     Dates: start: 20091021
  3. DIAZEPAM [Concomitant]
     Indication: INSOMNIA
     Route: 048
     Dates: start: 20091021
  4. DIAZEPAM [Concomitant]
     Indication: ANXIETY
     Route: 048
     Dates: start: 20091021
  5. TRAMADOL [Concomitant]
     Indication: PAIN IN EXTREMITY
     Route: 048
     Dates: start: 20091124
  6. ZANAFLEX [Concomitant]
     Indication: MUSCLE SPASMS
     Dates: start: 20100713
  7. DEPAKOTE [Concomitant]
     Indication: CONVULSION
     Dates: start: 20120604
  8. ROZEREM [Concomitant]
     Indication: INSOMNIA
     Dates: start: 20120303
  9. FIORICET [Concomitant]
     Indication: MIGRAINE
     Dates: start: 20090916
  10. FIORICET [Concomitant]
     Indication: PAIN
     Dates: start: 20090916
  11. METHYLPHENIDATE [Concomitant]
     Indication: ATTENTION DEFICIT/HYPERACTIVITY DISORDER
     Dates: start: 20080910
  12. TAMSULOSIN [Concomitant]
     Indication: BENIGN PROSTATIC HYPERPLASIA
     Dates: start: 20120103
  13. METHOCARBAMOL [Concomitant]
     Indication: MUSCLE SPASMS
     Dates: start: 20111011
  14. AMBIEN [Concomitant]

REACTIONS (3)
  - Multiple sclerosis [Fatal]
  - Loss of consciousness [Recovered/Resolved]
  - Convulsion [Recovered/Resolved]
